FAERS Safety Report 16182431 (Version 2)
Quarter: 2020Q3

REPORT INFORMATION
  Report Type: Spontaneous
  Country: CA (occurrence: CA)
  Receive Date: 20190410
  Receipt Date: 20200813
  Transmission Date: 20201102
  Serious: Yes (Hospitalization)
  Sender: FDA-Public Use
  Company Number: CA-ANIPHARMA-2019-CA-000437

PATIENT
  Age: 36 Year
  Sex: Female

DRUGS (16)
  1. MOBICOX [Concomitant]
     Active Substance: MELOXICAM
     Dosage: UNK UNK, QD
     Route: 048
     Dates: start: 2012, end: 2013
  2. TOPIRAMATE. [Concomitant]
     Active Substance: TOPIRAMATE
     Dosage: UNK
     Route: 065
  3. CELEBREX [Concomitant]
     Active Substance: CELECOXIB
     Dosage: UNK
     Route: 048
  4. SERTRALINE [Concomitant]
     Active Substance: SERTRALINE HYDROCHLORIDE
     Dosage: UNK
     Route: 065
  5. PANTOPRAZOLE [Suspect]
     Active Substance: PANTOPRAZOLE
     Dosage: 40 MILLIGRAM
     Route: 048
  6. ARTHROTEC [Concomitant]
     Active Substance: DICLOFENAC SODIUM\MISOPROSTOL
     Dosage: UNK
     Route: 048
  7. VOLTAREN [Suspect]
     Active Substance: DICLOFENAC SODIUM
     Dosage: UNK
     Route: 065
  8. NAPROXEN. [Concomitant]
     Active Substance: NAPROXEN
     Dosage: UNK
     Route: 065
  9. SIMPONI [Concomitant]
     Active Substance: GOLIMUMAB
     Dosage: 50 MILLIGRAM
     Route: 058
     Dates: start: 201711, end: 201806
  10. METHOTREXATE. [Suspect]
     Active Substance: METHOTREXATE
     Dosage: 25 MILLIGRAM, 1/WEEK
     Route: 058
     Dates: start: 2017
  11. CANDESARTAN CILEXETIL. [Suspect]
     Active Substance: CANDESARTAN CILEXETIL
     Indication: PRODUCT USED FOR UNKNOWN INDICATION
     Dosage: UNK
     Route: 048
  12. IBUPROFEN. [Concomitant]
     Active Substance: IBUPROFEN
     Dosage: UNK
     Route: 048
  13. TEMAZEPAM. [Concomitant]
     Active Substance: TEMAZEPAM
     Dosage: UNK
     Route: 065
  14. COSENTYX [Suspect]
     Active Substance: SECUKINUMAB
     Dosage: 300 MILLIGRAM, MONTHLY / DOSE TEXT: 300 MILLIGRAM, 1/WEEK
     Route: 058
     Dates: start: 20180706
  15. GABAPENTIN. [Concomitant]
     Active Substance: GABAPENTIN
     Dosage: 700 MG QD
     Route: 065
     Dates: start: 201602
  16. VITAMIN D [Suspect]
     Active Substance: VITAMIN D NOS
     Dosage: UNK
     Route: 065

REACTIONS (11)
  - Muscular weakness [Unknown]
  - Oedema peripheral [Unknown]
  - Pain [Unknown]
  - Hypertension [Unknown]
  - Fatigue [Unknown]
  - Influenza [Unknown]
  - Feeling abnormal [Unknown]
  - Treatment failure [Unknown]
  - Gait disturbance [Unknown]
  - Fall [Unknown]
  - Headache [Unknown]

NARRATIVE: CASE EVENT DATE: 201807
